FAERS Safety Report 18476760 (Version 1)
Quarter: 2020Q4

REPORT INFORMATION
  Report Type: Spontaneous
  Country: DE (occurrence: DE)
  Receive Date: 20201107
  Receipt Date: 20201107
  Transmission Date: 20210114
  Serious: Yes (Hospitalization)
  Sender: FDA-Public Use
  Company Number: DE-ACCORD-207480

PATIENT
  Age: 56 Year
  Sex: Female
  Weight: 125 kg

DRUGS (3)
  1. METHOTREXATE. [Suspect]
     Active Substance: METHOTREXATE
     Indication: PRODUCT USED FOR UNKNOWN INDICATION
     Dosage: 15 MG, FOR 2 WEEKS
  2. FELODIPINE. [Suspect]
     Active Substance: FELODIPINE
     Indication: PRODUCT USED FOR UNKNOWN INDICATION
     Dosage: 5 MG, 1-0-0-0
  3. HYDROCHLOROTHIAZIDE/RAMIPRIL [Concomitant]
     Active Substance: HYDROCHLOROTHIAZIDE\RAMIPRIL
     Dosage: 5 MG, 1-0-0-0

REACTIONS (8)
  - Nausea [Unknown]
  - Fatigue [Unknown]
  - Oedema peripheral [Unknown]
  - Dyspnoea [Unknown]
  - General physical health deterioration [Unknown]
  - Abdominal pain upper [Unknown]
  - Blood pressure increased [Unknown]
  - Condition aggravated [Unknown]
